FAERS Safety Report 7629155-2 (Version None)
Quarter: 2011Q3

REPORT INFORMATION
  Report Type: 
  Country: None (occurrence: None)
  Receive Date: 20110722
  Receipt Date: 20110707
  Transmission Date: 20111222
  Serious: Yes (Hospitalization)
  Sender: FDA-Public Use
  Company Number: PHHY2011MX61169

PATIENT
  Age: 82 Year
  Sex: Male

DRUGS (2)
  1. EXFORGE [Suspect]
     Indication: HYPERTENSION
     Dosage: 160 MG VALSARTAN AND 5 MG AMLODIPINE, DAILY
  2. LIPITOR [Concomitant]

REACTIONS (2)
  - CATARACT [None]
  - EYE DISORDER [None]
